FAERS Safety Report 9469979 (Version 2)
Quarter: 2013Q3

REPORT INFORMATION
  Report Type: Spontaneous
  Country: US (occurrence: US)
  Receive Date: 20130822
  Receipt Date: 20130923
  Transmission Date: 20140515
  Serious: Yes (Other)
  Sender: FDA-Public Use
  Company Number: US-UCBSA-095322

PATIENT
  Sex: Female
  Weight: 56.69 kg

DRUGS (1)
  1. CIMZIA [Suspect]
     Indication: RHEUMATOID ARTHRITIS
     Route: 058
     Dates: start: 2010, end: 20130720

REACTIONS (2)
  - Squamous cell carcinoma [Recovered/Resolved]
  - Inappropriate schedule of drug administration [Unknown]
